FAERS Safety Report 10908111 (Version 2)
Quarter: 2015Q3

REPORT INFORMATION
  Report Type: Spontaneous
  Country: US (occurrence: US)
  Receive Date: 20150312
  Receipt Date: 20150924
  Transmission Date: 20151125
  Serious: Yes (Other)
  Sender: FDA-Public Use
  Company Number: US-INCYTE CORPORATION-2014IN003900

PATIENT
  Age: 73 Year
  Sex: Male
  Weight: 71 kg

DRUGS (13)
  1. JAKAFI [Suspect]
     Active Substance: RUXOLITINIB
     Dosage: 15 MG, 3 DAYS ON, 1 DAY OFF
     Route: 048
     Dates: start: 20140714, end: 20150108
  2. TACROLIMUS. [Concomitant]
     Active Substance: TACROLIMUS
     Dosage: UNK
  3. JAKAFI [Suspect]
     Active Substance: RUXOLITINIB
     Dosage: NOT SPECIFIED (DECREASED DOSE AND FREQUENCY)
     Dates: start: 20150911
  4. MAGNESIUM [Concomitant]
     Active Substance: MAGNESIUM
     Dosage: UNK
  5. VITAMINS NOS [Concomitant]
     Active Substance: VITAMINS
     Dosage: UNK
  6. JAKAFI [Suspect]
     Active Substance: RUXOLITINIB
     Dosage: 15 MG QOD FOR 2 DAYS, AND SKIP A DAY
     Dates: start: 20140919
  7. JAKAFI [Suspect]
     Active Substance: RUXOLITINIB
     Dosage: 15 MG, QD
     Route: 048
     Dates: start: 20140820, end: 201409
  8. OMEPRAZOLE. [Concomitant]
     Active Substance: OMEPRAZOLE
     Dosage: UNK
  9. WARFARIN [Concomitant]
     Active Substance: WARFARIN
     Dosage: UNK
  10. JAKAFI [Suspect]
     Active Substance: RUXOLITINIB
     Indication: POLYCYTHAEMIA VERA
     Dosage: 20 MG, QD
     Route: 048
     Dates: start: 201406
  11. HYDROCODONE [Concomitant]
     Active Substance: HYDROCODONE
     Dosage: UNK
  12. JAKAFI [Suspect]
     Active Substance: RUXOLITINIB
     Dosage: 15 MG, FOR 2 DAYS, AND SKIP A DAY
     Route: 048
     Dates: start: 2014
  13. MYCOPHENOLATE MOFETIL. [Concomitant]
     Active Substance: MYCOPHENOLATE MOFETIL
     Dosage: UNK

REACTIONS (12)
  - Sinusitis [Unknown]
  - Blood creatinine increased [Unknown]
  - Epistaxis [Unknown]
  - Insomnia [Unknown]
  - Platelet count decreased [Unknown]
  - Thrombocytopenia [Recovered/Resolved]
  - Drug prescribing error [Unknown]
  - Diarrhoea [Recovered/Resolved]
  - Headache [Unknown]
  - Back pain [Not Recovered/Not Resolved]
  - Splenomegaly [Unknown]
  - Mucosal inflammation [Unknown]

NARRATIVE: CASE EVENT DATE: 20140911
